FAERS Safety Report 4495779-7 (Version None)
Quarter: 2004Q4

REPORT INFORMATION
  Report Type: 
  Country: None (occurrence: None)
  Receive Date: 20041108
  Receipt Date: 20041028
  Transmission Date: 20050328
  Serious: Yes (Hospitalization)
  Sender: FDA-Public Use
  Company Number: CH-BRISTOL-MYERS SQUIBB COMPANY-12749123

PATIENT
  Age: 9 Decade
  Sex: Female

DRUGS (1)
  1. COAPROVEL TABS 150MG/12.5MG [Suspect]
     Indication: HYPERTENSION
     Route: 048
     Dates: start: 20040301

REACTIONS (2)
  - AORTIC STENOSIS [None]
  - BLOOD PRESSURE SYSTOLIC INCREASED [None]
